FAERS Safety Report 6468909-5 (Version None)
Quarter: 2009Q4

REPORT INFORMATION
  Report Type: 
  Country: None (occurrence: None)
  Receive Date: 20091203
  Receipt Date: 20071011
  Transmission Date: 20100525
  Serious: Yes (Other)
  Sender: FDA-Public Use
  Company Number: AU-ELI_LILLY_AND_COMPANY-AU200610003987

PATIENT
  Sex: Female

DRUGS (5)
  1. STRATTERA [Suspect]
     Indication: ATTENTION DEFICIT/HYPERACTIVITY DISORDER
     Dosage: 10 MG, DAILY (1/D)
     Dates: start: 20060101
  2. STRATTERA [Suspect]
     Dosage: 40 MG, DAILY (1/D)
     Dates: start: 20060901
  3. STRATTERA [Suspect]
     Dosage: 25 MG, DAILY (1/D)
     Dates: start: 20070901
  4. SERENACE [Concomitant]
     Dosage: 2.5 MG, DAILY (1/D)
     Dates: end: 20060928
  5. SERENACE [Concomitant]
     Dosage: 2 MG, DAILY (1/D)
     Dates: start: 20060929

REACTIONS (24)
  - ABDOMINAL PAIN [None]
  - ABNORMAL BEHAVIOUR [None]
  - CHOREA [None]
  - COGNITIVE DISORDER [None]
  - COLOUR BLINDNESS [None]
  - DECREASED APPETITE [None]
  - DIZZINESS [None]
  - EDUCATIONAL PROBLEM [None]
  - EXPIRED DRUG ADMINISTERED [None]
  - FAECAL INCONTINENCE [None]
  - HEADACHE [None]
  - INSOMNIA [None]
  - INTRACRANIAL PRESSURE INCREASED [None]
  - MACULOPATHY [None]
  - MOTOR DYSFUNCTION [None]
  - NAUSEA [None]
  - NEUROLOGICAL SYMPTOM [None]
  - PAIN [None]
  - STRABISMUS [None]
  - URINARY INCONTINENCE [None]
  - VISUAL ACUITY TESTS ABNORMAL [None]
  - VISUAL IMPAIRMENT [None]
  - VOMITING [None]
  - WEIGHT DECREASED [None]
